FAERS Safety Report 17504292 (Version 2)
Quarter: 2025Q2

REPORT INFORMATION
  Report Type: Spontaneous
  Country: DE (occurrence: DE)
  Receive Date: 20200305
  Receipt Date: 20250610
  Transmission Date: 20250716
  Serious: Yes (Death, Hospitalization, Other)
  Sender: MYLAN
  Company Number: DE-MEDAC-2020000119

PATIENT
  Age: 68 Year
  Sex: Female

DRUGS (9)
  1. METHOTREXATE [Suspect]
     Active Substance: METHOTREXATE
     Indication: Rheumatoid arthritis
     Dosage: 15 MILLIGRAM, QD (15 MG METHOTREXATE ORALLY ONCE A WEEK PRESCRIBED)
  2. LANTUS [Concomitant]
     Active Substance: INSULIN GLARGINE
     Indication: Diabetes mellitus
     Dosage: 20 INTERNATIONAL UNIT, QD (1X/DAY (AT NIGHT))
  3. PREDNISOLONE [Concomitant]
     Active Substance: PREDNISOLONE
     Indication: Rheumatoid arthritis
     Dosage: 20 MILLIGRAM, QD (DAILY)
  4. METFORMIN [Concomitant]
     Active Substance: METFORMIN HYDROCHLORIDE
     Indication: Diabetes mellitus
     Dosage: 1000 MILLIGRAM, BID (1000 MG, 2X/DAY)
  5. RAMIPRIL [Concomitant]
     Active Substance: RAMIPRIL
     Indication: Hypertension
  6. AMLODIPINE [Concomitant]
     Active Substance: AMLODIPINE BESYLATE
     Indication: Hypertension
  7. FOLIC ACID [Concomitant]
     Active Substance: FOLIC ACID
  8. FILGRASTIM [Concomitant]
     Active Substance: FILGRASTIM
  9. TAZOBACTAM [Concomitant]
     Active Substance: TAZOBACTAM

REACTIONS (14)
  - Circulatory collapse [Fatal]
  - Sepsis [Fatal]
  - Staphylococcal infection [Fatal]
  - Pancytopenia [Fatal]
  - Accidental overdose [Fatal]
  - Tachycardia [Unknown]
  - Leukopenia [Unknown]
  - Lymphopenia [Unknown]
  - Normochromic normocytic anaemia [Unknown]
  - Thrombocytopenia [Unknown]
  - C-reactive protein increased [Unknown]
  - Pyrexia [Unknown]
  - Hypotension [Unknown]
  - Inappropriate schedule of product administration [Not Recovered/Not Resolved]
